FAERS Safety Report 8922034 (Version 1)
Quarter: 2012Q4

REPORT INFORMATION
  Report Type: Spontaneous
  Country: US (occurrence: None)
  Receive Date: 20121120
  Receipt Date: 20121120
  Transmission Date: 20130627
  Serious: No
  Sender: FDA-Public Use
  Company Number: None

PATIENT
  Sex: Female

DRUGS (1)
  1. XELODA [Suspect]
     Indication: MALIGNANT NEOPLASM OF URETER
     Dosage: 1500mg bid po
     Route: 048
     Dates: start: 20120824, end: 20121112

REACTIONS (4)
  - Confusional state [None]
  - Fall [None]
  - Abnormal dreams [None]
  - Hallucination [None]
